FAERS Safety Report 4317679-5 (Version None)
Quarter: 2004Q1

REPORT INFORMATION
  Report Type: 
  Country: None (occurrence: None)
  Receive Date: 20040315
  Receipt Date: 20040308
  Transmission Date: 20041129
  Serious: Yes (Hospitalization)
  Sender: FDA-Public Use
  Company Number: US-BRISTOL-MYERS SQUIBB COMPANY-12528535

PATIENT
  Age: 60 Year
  Sex: Female
  Weight: 73 kg

DRUGS (13)
  1. TEQUIN [Suspect]
     Indication: ACUTE RESPIRATORY FAILURE
     Route: 042
  2. TEQUIN [Suspect]
     Indication: ACUTE RESPIRATORY FAILURE
     Route: 048
  3. PREDNISONE [Concomitant]
  4. GLUCOTROL XL [Concomitant]
  5. ANTIHYPERTENSIVE [Concomitant]
  6. SYNTHROID [Concomitant]
  7. LASIX [Concomitant]
  8. POTASSIUM [Concomitant]
  9. ACCOLATE [Concomitant]
  10. NEXIUM [Concomitant]
     Dosage: AT BEDTIME
  11. LORTAB [Concomitant]
  12. PAXIL [Concomitant]
  13. INHALERS [Concomitant]
     Route: 045

REACTIONS (2)
  - ERYTHEMA [None]
  - SKIN ULCER [None]
